FAERS Safety Report 18619253 (Version 1)
Quarter: 2020Q4

REPORT INFORMATION
  Report Type: Spontaneous
  Country: US (occurrence: US)
  Receive Date: 20201215
  Receipt Date: 20201215
  Transmission Date: 20210114
  Serious: Yes (Other)
  Sender: FDA-Public Use
  Company Number: US-PURDUE-USA-2020-0180149

PATIENT

DRUGS (1)
  1. OXYCONTIN [Suspect]
     Active Substance: OXYCODONE HYDROCHLORIDE
     Indication: PRODUCT USED FOR UNKNOWN INDICATION
     Dosage: UNKNOWN
     Route: 048

REACTIONS (16)
  - Loss of consciousness [Unknown]
  - Dental caries [Unknown]
  - Electrolyte imbalance [Unknown]
  - Cognitive disorder [Unknown]
  - Dyspnoea [Unknown]
  - Dyskinesia [Unknown]
  - Major depression [Unknown]
  - Mental impairment [Unknown]
  - Drug dependence [Unknown]
  - Pain [Unknown]
  - Emotional distress [Unknown]
  - Cerebrovascular accident [Unknown]
  - Inflammation [Unknown]
  - General physical health deterioration [Unknown]
  - Memory impairment [Unknown]
  - Tooth loss [Unknown]
